FAERS Safety Report 10280532 (Version 2)
Quarter: 2014Q3

REPORT INFORMATION
  Report Type: Spontaneous
  Country: US (occurrence: US)
  Receive Date: 20140707
  Receipt Date: 20140822
  Transmission Date: 20150326
  Serious: No
  Sender: FDA-Public Use
  Company Number: US-PFIZER INC-2014184618

PATIENT
  Age: 54 Year
  Sex: Female
  Weight: 101 kg

DRUGS (4)
  1. EFFEXOR XR [Suspect]
     Active Substance: VENLAFAXINE HYDROCHLORIDE
     Indication: DEPRESSION
     Dosage: 150 MG, 1X/DAY
     Dates: end: 201406
  2. VENLAFAXINE HCL [Suspect]
     Active Substance: VENLAFAXINE HYDROCHLORIDE
     Indication: DEPRESSION
     Dosage: 150 MG, 1X/DAY
     Route: 048
     Dates: start: 201406, end: 201406
  3. VENLAFAXINE HCL [Suspect]
     Active Substance: VENLAFAXINE HYDROCHLORIDE
     Dosage: 225 MG DAILY BY TAKING 150 MG AT NIGHT AND 75 MG IN THE MORNING
     Route: 048
     Dates: start: 201406
  4. XANAX [Concomitant]
     Active Substance: ALPRAZOLAM
     Dosage: UNK

REACTIONS (11)
  - Fear [Unknown]
  - Feeling hot [Unknown]
  - Personality disorder [Unknown]
  - Dizziness [Unknown]
  - Musculoskeletal discomfort [Unknown]
  - Blood pressure abnormal [Unknown]
  - Withdrawal syndrome [Unknown]
  - Disturbance in attention [Unknown]
  - Eating disorder [Unknown]
  - Intentional product misuse [Unknown]
  - Feeling drunk [Unknown]

NARRATIVE: CASE EVENT DATE: 201406
